FAERS Safety Report 6580886-5 (Version None)
Quarter: 2010Q1

REPORT INFORMATION
  Report Type: 
  Country: None (occurrence: None)
  Receive Date: 20100203
  Receipt Date: 20100118
  Transmission Date: 20100710
  Serious: Yes (Death)
  Sender: FDA-Public Use
  Company Number: B0627534A

PATIENT
  Age: 37 Year
  Sex: Female

DRUGS (7)
  1. BUPROPION HYDROCHLORIDE [Suspect]
     Dosage: ORAL
     Route: 048
  2. IRON SALT (FORMULATION UNKNOWN) (GENERIC) (IRON SALT) [Suspect]
     Dosage: ORAL
     Route: 048
  3. OMEPRAZOLE [Suspect]
     Dosage: ORAL
     Route: 048
  4. BUSPIRONE HCL [Suspect]
     Dosage: ORAL
     Route: 048
  5. ETHANOL (FORMULATION UNKNOWN) (ALCOHOL) [Suspect]
     Dosage: ORAL
     Route: 048
  6. DULOXETINE HYDROCHLORIDE [Suspect]
     Dosage: ORAL
     Route: 048
  7. UNKNOWN (FORMULATION UNKNOWN) (UNKNOWN) [Suspect]
     Dosage: ORAL
     Route: 048

REACTIONS (1)
  - COMPLETED SUICIDE [None]
